FAERS Safety Report 8737665 (Version 2)
Quarter: 2013Q2

REPORT INFORMATION
  Report Type: Report from Study
  Country: JP (occurrence: JP)
  Receive Date: 20120822
  Receipt Date: 20130402
  Transmission Date: 20140414
  Serious: Yes (Congenital Anomaly)
  Sender: FDA-Public Use
  Company Number: JP-009507513-1208JPN003791

PATIENT
  Age: 71 Year
  Sex: Male
  Weight: 55 kg

DRUGS (4)
  1. PEGINTRON [Suspect]
     Indication: CHRONIC HEPATITIS C
     Dosage: UNK MICROGRAM PER KILOGRAM, UNK
     Route: 058
     Dates: start: 20120604, end: 20120609
  2. REBETOL [Suspect]
     Indication: CHRONIC HEPATITIS C
     Dosage: 600 MG, QD
     Route: 048
     Dates: start: 20120604, end: 20120609
  3. TELAVIC [Suspect]
     Indication: CHRONIC HEPATITIS C
     Dosage: 2250 MG, QD
     Route: 048
     Dates: start: 20120604, end: 20120609
  4. URSO [Concomitant]
     Indication: CHRONIC HEPATITIS C
     Dosage: 300 MG, QD
     Route: 048
     Dates: start: 20120625

REACTIONS (6)
  - Renal impairment [Recovered/Resolved]
  - Gastritis [None]
  - Angina pectoris [None]
  - Decreased appetite [None]
  - Malaise [None]
  - Anaemia [None]
